FAERS Safety Report 18042060 (Version 1)
Quarter: 2020Q3

REPORT INFORMATION
  Report Type: Spontaneous
  Country: US (occurrence: US)
  Receive Date: 20200720
  Receipt Date: 20200720
  Transmission Date: 20201104
  Serious: Yes (Other)
  Sender: FDA-Public Use
  Company Number: US-LUPIN PHARMACEUTICALS INC.-2020-03301

PATIENT
  Age: 68 Year
  Sex: Male

DRUGS (3)
  1. LENZILUMAB. [Suspect]
     Active Substance: LENZILUMAB
     Indication: COVID-19
     Dosage: 3 DOSAGE FORM (600 MG IN THE INITIAL 36 H OF HOSPITAL ADMISSION)
     Route: 042
  2. HYDROXYCHLOROQUINE [Suspect]
     Active Substance: HYDROXYCHLOROQUINE
     Indication: COVID-19
     Dosage: 400 MILLIGRAM FOR TWO DOSES
     Route: 048
  3. HYDROXYCHLOROQUINE [Suspect]
     Active Substance: HYDROXYCHLOROQUINE
     Dosage: 200 MILLIGRAM, BID
     Route: 048

REACTIONS (2)
  - Hypoxia [Recovered/Resolved]
  - Off label use [Unknown]
